FAERS Safety Report 17697646 (Version 2)
Quarter: 2021Q1

REPORT INFORMATION
  Report Type: Report from Study
  Country: US (occurrence: US)
  Receive Date: 20200423
  Receipt Date: 20210326
  Transmission Date: 20210419
  Serious: Yes (Hospitalization)
  Sender: FDA-Public Use
  Company Number: US-SA-2018SA209463

PATIENT
  Age: 79 Year
  Sex: Female
  Weight: 56.7 kg

DRUGS (28)
  1. ISATUXIMAB [Suspect]
     Active Substance: ISATUXIMAB
     Dosage: 10 MG/KG, QW
     Route: 042
     Dates: start: 20161005, end: 20161005
  2. DEXAMETHASONE. [Suspect]
     Active Substance: DEXAMETHASONE
     Dosage: 40 MG, QW
     Route: 048
     Dates: start: 20161005, end: 20161005
  3. PROBIOTIC COMPLEX [Concomitant]
     Dosage: TOTAL DAILY DOSE: 100MG
     Route: 048
     Dates: start: 20160712
  4. CYMBALTA [Concomitant]
     Active Substance: DULOXETINE HYDROCHLORIDE
     Dosage: TOTAL DAILY DOSE: 60 MG
     Route: 048
     Dates: start: 20170719
  5. DIPHENHYDRAMINE. [Concomitant]
     Active Substance: DIPHENHYDRAMINE
     Dosage: 25 MG, 1X
     Route: 042
     Dates: start: 20180711, end: 20180711
  6. POMALIDOMIDE [Suspect]
     Active Substance: POMALIDOMIDE
     Dosage: 4 MG, QD
     Route: 048
     Dates: start: 20161005, end: 20161005
  7. AREDIA [Concomitant]
     Active Substance: PAMIDRONATE DISODIUM
     Dosage: TOTAL DAILY DOSE: 90 MG
     Route: 042
     Dates: start: 20081126
  8. VITAMIN B COMPLEX [Concomitant]
     Active Substance: CYANOCOBALAMIN\DEXPANTHENOL\NIACINAMIDE\PYRIDOXINE HYDROCHLORIDE\RIBOFLAVIN 5^-PHOSPHATE SODIUM\THIAMINE HYDROCHLORIDE\VITAMIN B COMPLEX
     Dosage: UNK
     Route: 048
     Dates: start: 20130108
  9. OXYCODONE [Concomitant]
     Active Substance: OXYCODONE
     Dosage: TOTAL DAILY DOSE: 10 MG
     Route: 048
     Dates: start: 20180222
  10. TYLENOL [Concomitant]
     Active Substance: ACETAMINOPHEN
     Dosage: TOTAL DAILY DOSE: 650 MG
     Route: 048
     Dates: start: 20180222
  11. POMALIDOMIDE [Suspect]
     Active Substance: POMALIDOMIDE
     Indication: PLASMA CELL MYELOMA REFRACTORY
     Dosage: 4 MG, QD
     Route: 048
     Dates: start: 20180720, end: 20180720
  12. ZOVIRAX [Concomitant]
     Active Substance: ACYCLOVIR
     Dosage: TOTAL DAILY DOSE: 400 MG
     Route: 048
     Dates: start: 20160505
  13. ISATUXIMAB [Suspect]
     Active Substance: ISATUXIMAB
     Indication: PLASMA CELL MYELOMA REFRACTORY
     Dosage: 10 MG/KG, QOW
     Route: 042
     Dates: start: 20180711, end: 20180711
  14. OMEGA?3 FATTY ACIDS [Concomitant]
     Active Substance: OMEGA-3 FATTY ACIDS
     Dosage: TOTAL DAILY DOSE: 1000 MG
     Route: 048
     Dates: start: 20130108
  15. REQUIP [Concomitant]
     Active Substance: ROPINIROLE HYDROCHLORIDE
     Dosage: TOTAL DAILY DOSE: 0.25 MG
     Route: 048
     Dates: start: 20161205
  16. VITAMIN E [Concomitant]
     Active Substance: .ALPHA.-TOCOPHEROL
     Dosage: TOTAL DAILY DOSE: 400 U
     Route: 048
     Dates: start: 20130710
  17. PRILOSEC [Concomitant]
     Active Substance: OMEPRAZOLE MAGNESIUM
     Dosage: TOTAL DAILY DOSE: 20 MG
     Route: 048
     Dates: start: 20161003
  18. OXYCONTIN [Concomitant]
     Active Substance: OXYCODONE HYDROCHLORIDE
     Dosage: TOTAL DAILY DOSE: 30 MG
     Route: 048
     Dates: start: 20150513
  19. FERROUS GLUCONATE [Concomitant]
     Active Substance: FERROUS GLUCONATE
     Dosage: TOTAL DAILY DOSE: 325 MG
     Route: 048
     Dates: start: 20130108
  20. DEXAMETHASONE. [Suspect]
     Active Substance: DEXAMETHASONE
     Indication: PLASMA CELL MYELOMA
     Dosage: 40 MG, QW
     Route: 048
     Dates: start: 20180718, end: 20180718
  21. ASPIRIN [ACETYLSALICYLIC ACID] [Concomitant]
     Active Substance: ASPIRIN
     Dosage: TOTAL DAILY DOSE: 325 MG
     Route: 048
     Dates: start: 20161003
  22. IBUPROFEN. [Concomitant]
     Active Substance: IBUPROFEN
     Dosage: UNK UNK, UNK
     Route: 048
     Dates: start: 20170214
  23. ACETAMINOPHEN. [Concomitant]
     Active Substance: ACETAMINOPHEN
     Dosage: 650 MG, 1X
     Route: 048
     Dates: start: 20180711, end: 20180711
  24. CHOLECALCIFEROL [Concomitant]
     Active Substance: CHOLECALCIFEROL
     Dosage: TOTAL DAILY DOSE: 400 U
     Route: 048
     Dates: start: 20130108
  25. NEURONTIN [Concomitant]
     Active Substance: GABAPENTIN
     Dosage: TOTAL DAILY DOSE: 600 MG
     Route: 048
     Dates: start: 20151228
  26. PREDNISONE. [Concomitant]
     Active Substance: PREDNISONE
     Dosage: TOTAL DAILY DOSE: 5 MG
     Route: 048
     Dates: start: 20171108
  27. OXYCODONE [Concomitant]
     Active Substance: OXYCODONE
     Dosage: TOTAL DAILY DOSE: 5 MG
     Route: 048
     Dates: start: 20150513
  28. FAMOTIDINE. [Concomitant]
     Active Substance: FAMOTIDINE
     Dosage: 20 MG, 1X
     Route: 042
     Dates: start: 20180711, end: 20180711

REACTIONS (1)
  - Cellulitis [Recovered/Resolved]

NARRATIVE: CASE EVENT DATE: 20180721
